FAERS Safety Report 10395666 (Version 1)
Quarter: 2014Q1

REPORT INFORMATION
  Report Type: Spontaneous
  Country: US (occurrence: None)
  Receive Date: 20130724
  Receipt Date: 20130724
  Transmission Date: 20141002
  Serious: Yes (Hospitalization)
  Sender: FDA-Public Use
  Company Number: PHEH2009US08047

PATIENT
  Age: 73 Year
  Sex: Female

DRUGS (8)
  1. GLEEVEC (IMATINIB) UNKNOWN [Suspect]
     Indication: CARCINOID TUMOUR OF THE SMALL BOWEL
     Route: 048
  2. ASPIRIN ENTERIC COATED K.P. (ACETYLSALICYLIC ACID) [Concomitant]
  3. CENTRUM (MINERALS NOS, VITAMINS NOS) [Concomitant]
  4. CELEBREX (CELECOXIB) [Concomitant]
  5. ENALAPRIL MALEATE [Concomitant]
  6. NASACORT AQ (TRIAMCINOLONE ACETONIDE) [Concomitant]
  7. ALBUTEROL (SALBUTAMOL) [Concomitant]
  8. DOCOSATE SODIUM [Concomitant]

REACTIONS (4)
  - Arrhythmia [None]
  - Skin discolouration [None]
  - Diarrhoea [None]
  - Nausea [None]
